FAERS Safety Report 6416025-0 (Version None)
Quarter: 2009Q4

REPORT INFORMATION
  Report Type: 
  Country: None (occurrence: None)
  Receive Date: 20091027
  Receipt Date: 20091019
  Transmission Date: 20100525
  Serious: Yes (Hospitalization)
  Sender: FDA-Public Use
  Company Number: US-AVENTIS-200919490US

PATIENT
  Sex: Female

DRUGS (6)
  1. LOVENOX [Suspect]
     Dates: start: 20090817
  2. LOVENOX [Suspect]
     Dosage: DOSE: UNK
     Dates: start: 20090814
  3. ^LOW THYROID MEDICATION^ [Concomitant]
     Dosage: DOSE: UNK
  4. VITAMINS NOS [Concomitant]
     Dosage: DOSE: UNK
  5. SYMBICORT [Concomitant]
     Indication: ASTHMA
     Dosage: DOSE: UNK
  6. LASIX [Concomitant]
     Dosage: DOSE: UNK

REACTIONS (8)
  - ARRHYTHMIA [None]
  - DYSPNOEA [None]
  - FEELING ABNORMAL [None]
  - INJECTION SITE HAEMATOMA [None]
  - INJECTION SITE NODULE [None]
  - PRURITUS [None]
  - PULMONARY OEDEMA [None]
  - SYNCOPE [None]
